FAERS Safety Report 7384449-3 (Version None)
Quarter: 2011Q1

REPORT INFORMATION
  Report Type: 
  Country: None (occurrence: None)
  Receive Date: 20110330
  Receipt Date: 20110328
  Transmission Date: 20110831
  Serious: Yes (Other)
  Sender: FDA-Public Use
  Company Number: US-PFIZER INC-2011068268

PATIENT
  Sex: Female
  Weight: 54.875 kg

DRUGS (2)
  1. MELOXICAM [Concomitant]
     Indication: BACK PAIN
     Dosage: 7.5 MG, 1X/DAY
     Route: 048
     Dates: start: 20101001
  2. LYRICA [Suspect]
     Indication: NERVE INJURY
     Dosage: 25 MG, 2X/DAY
     Route: 048
     Dates: start: 20101101, end: 20110327

REACTIONS (5)
  - DYSPNOEA [None]
  - INSOMNIA [None]
  - VISION BLURRED [None]
  - ANXIETY [None]
  - HEART RATE INCREASED [None]
